FAERS Safety Report 10250967 (Version 2)
Quarter: 2014Q3

REPORT INFORMATION
  Report Type: Spontaneous
  Country: SE (occurrence: SE)
  Receive Date: 20140620
  Receipt Date: 20140703
  Transmission Date: 20150326
  Serious: Yes (Hospitalization, Other)
  Sender: FDA-Public Use
  Company Number: SE-PFIZER INC-2014168101

PATIENT
  Age: 64 Year
  Sex: Male

DRUGS (9)
  1. SALURES [Concomitant]
     Active Substance: BENDROFLUMETHIAZIDE
     Dosage: UNK
  2. ATORVASTATIN CALCIUM. [Suspect]
     Active Substance: ATORVASTATIN CALCIUM
     Indication: HYPERLIPIDAEMIA
     Dosage: 80 MG, 1X/DAY
     Route: 048
     Dates: start: 20140328, end: 20140414
  3. METFORMIN [Concomitant]
     Active Substance: METFORMIN HYDROCHLORIDE
     Dosage: UNK
     Dates: end: 20140414
  4. BRILIQUE [Concomitant]
     Active Substance: TICAGRELOR
     Dosage: 90 MG, UNK
  5. ONGLYZA [Concomitant]
     Active Substance: SAXAGLIPTIN HYDROCHLORIDE
     Dosage: UNK
  6. ATORVASTATIN CALCIUM. [Suspect]
     Active Substance: ATORVASTATIN CALCIUM
     Indication: MYOCARDIAL ISCHAEMIA
  7. METOPROLOL [Concomitant]
     Active Substance: METOPROLOL
     Dosage: UNK
  8. TROMBYL [Concomitant]
     Active Substance: ASPIRIN
     Dosage: UNK
  9. CANDESARTAN [Concomitant]
     Active Substance: CANDESARTAN
     Dosage: UNK
     Dates: end: 20140414

REACTIONS (5)
  - Cholestasis [Recovered/Resolved]
  - Rhabdomyolysis [Recovered/Resolved]
  - Sleep disorder [Recovered/Resolved]
  - Renal failure [Recovered/Resolved]
  - Pyrexia [Recovered/Resolved]

NARRATIVE: CASE EVENT DATE: 20140406
